FAERS Safety Report 4365628-6 (Version None)
Quarter: 2004Q2

REPORT INFORMATION
  Report Type: 
  Country: None (occurrence: None)
  Receive Date: 20040526
  Receipt Date: 20040526
  Transmission Date: 20050107
  Serious: Yes (Other)
  Sender: FDA-Public Use
  Company Number: None

PATIENT
  Age: 44 Year
  Sex: Female
  Weight: 64.4 kg

DRUGS (8)
  1. RISPERIDONE [Suspect]
     Indication: PSYCHOTIC DISORDER
     Dosage: 3 MG QHS ORAL
     Route: 048
     Dates: start: 20040413, end: 20040415
  2. DOXEPIN HCL [Concomitant]
  3. FLONASE NS [Concomitant]
  4. PHENYTOIN [Concomitant]
  5. RANITIDINE [Concomitant]
  6. APAP TAB [Concomitant]
  7. MAALOX [Concomitant]
  8. MOM [Concomitant]

REACTIONS (1)
  - NEUTROPENIA [None]
